FAERS Safety Report 24747069 (Version 1)
Quarter: 2024Q4

REPORT INFORMATION
  Report Type: Spontaneous
  Country: DE (occurrence: DE)
  Receive Date: 20241218
  Receipt Date: 20241218
  Transmission Date: 20250115
  Serious: Yes (Death, Other)
  Sender: ENDO
  Company Number: DE-ENDO USA, INC.-2024-050944

PATIENT
  Age: 36 Year
  Sex: Female

DRUGS (10)
  1. EDEX [Suspect]
     Active Substance: ALPROSTADIL
     Indication: Product used for unknown indication
     Dosage: 20 MICROGRAM, UNKNOWN (FIRST TREATMENT IN MALE PARTNER)
     Route: 050
  2. EDEX [Suspect]
     Active Substance: ALPROSTADIL
     Indication: Product used for unknown indication
     Dosage: 20 MICROGRAM, UNKNOWN (FIRST TREATMENT IN MALE PARTNER)
     Route: 050
  3. EDEX [Suspect]
     Active Substance: ALPROSTADIL
     Indication: Product used for unknown indication
     Dosage: 20 MICROGRAM, UNKNOWN (FIRST TREATMENT IN MALE PARTNER)
     Route: 050
  4. EDEX [Suspect]
     Active Substance: ALPROSTADIL
     Indication: Product used for unknown indication
     Dosage: 20 MICROGRAM, UNKNOWN (FIRST TREATMENT IN MALE PARTNER)
     Route: 050
  5. EDEX [Suspect]
     Active Substance: ALPROSTADIL
     Indication: Product used for unknown indication
     Dosage: 20 MICROGRAM, UNKNOWN (FIRST TREATMENT IN MALE PARTNER)
     Route: 050
  6. EDEX [Suspect]
     Active Substance: ALPROSTADIL
     Dosage: 20 MICROGRAM, UNKNOWN (SECOND TREATMENT IN MALE PARTNER)
     Route: 050
  7. EDEX [Suspect]
     Active Substance: ALPROSTADIL
     Dosage: 20 MICROGRAM, UNKNOWN (SECOND TREATMENT IN MALE PARTNER)
     Route: 050
  8. EDEX [Suspect]
     Active Substance: ALPROSTADIL
     Dosage: 20 MICROGRAM, UNKNOWN (SECOND TREATMENT IN MALE PARTNER)
     Route: 050
  9. EDEX [Suspect]
     Active Substance: ALPROSTADIL
     Dosage: 20 MICROGRAM, UNKNOWN (SECOND TREATMENT IN MALE PARTNER)
     Route: 050
  10. EDEX [Suspect]
     Active Substance: ALPROSTADIL
     Dosage: 20 MICROGRAM, UNKNOWN (SECOND TREATMENT IN MALE PARTNER)
     Route: 050

REACTIONS (3)
  - Abortion spontaneous [Fatal]
  - Failed in vitro fertilisation [Recovered/Resolved]
  - Paternal exposure before pregnancy [Not Recovered/Not Resolved]
